FAERS Safety Report 4286425-6 (Version None)
Quarter: 2004Q1

REPORT INFORMATION
  Report Type: 
  Country: None (occurrence: None)
  Receive Date: 20040114
  Receipt Date: 20040114
  Transmission Date: 20041129
  Serious: Yes (Death, Other)
  Sender: FDA-Public Use
  Company Number: None

PATIENT
  Age: 79 Year
  Sex: Male
  Weight: 82 kg

DRUGS (4)
  1. CYTARABINE [Suspect]
     Indication: MYELODYSPLASTIC SYNDROME
     Dosage: 100 MG/M2 OTHER
     Route: 050
     Dates: start: 20031205
  2. MDR-INTRAVENOUS FORMULATION [Suspect]
     Indication: MYELODYSPLASTIC SYNDROME
     Dosage: 550 MG OTHER
     Route: 050
     Dates: start: 20031205
  3. DAUNORUBICIN HCL [Suspect]
     Indication: MYELODYSPLASTIC SYNDROME
     Dosage: 45 MG/M2 OTHER
     Route: 050
     Dates: start: 20031205
  4. ALLOPURINOL [Concomitant]

REACTIONS (6)
  - CARDIAC ARREST [None]
  - CARDIAC FAILURE CONGESTIVE [None]
  - LEUKAEMIA [None]
  - MENINGITIS [None]
  - SUPRAVENTRICULAR TACHYCARDIA [None]
  - TROPONIN INCREASED [None]
